FAERS Safety Report 13071317 (Version 3)
Quarter: 2019Q1

REPORT INFORMATION
  Report Type: Spontaneous
  Country: US (occurrence: US)
  Receive Date: 20161229
  Receipt Date: 20190305
  Transmission Date: 20190417
  Serious: Yes (Hospitalization, Other)
  Sender: FDA-Public Use
  Company Number: US-SA-2016SA237044

PATIENT
  Age: 60 Year
  Sex: Female

DRUGS (3)
  1. ACETYLSALICYLIC ACID [Concomitant]
     Active Substance: ASPIRIN
     Dosage: UNK
  2. MESALAZINE [Concomitant]
     Active Substance: MESALAMINE
     Dosage: 81 MG,QD
  3. RENAGEL [Suspect]
     Active Substance: SEVELAMER HYDROCHLORIDE
     Indication: HYPERPHOSPHATAEMIA
     Dosage: 800 MG,TID
     Route: 048

REACTIONS (11)
  - Large intestine polyp [Recovered/Resolved]
  - Haematochezia [Recovered/Resolved]
  - Gastrointestinal mucosal disorder [Recovered/Resolved]
  - Oesophageal ulcer [Recovered/Resolved]
  - Gastric ulcer [Unknown]
  - Crystal deposit intestine [Recovered/Resolved]
  - Gastritis [Recovered/Resolved]
  - Oesophagitis [Recovered/Resolved]
  - Gastrointestinal haemorrhage [Recovered/Resolved]
  - Gastric polyps [Recovered/Resolved]
  - Melaena [Unknown]
